FAERS Safety Report 22274772 (Version 1)
Quarter: 2023Q2

REPORT INFORMATION
  Report Type: Other
  Country: None (occurrence: TR)
  Receive Date: 20230502
  Receipt Date: 20230502
  Transmission Date: 20230722
  Serious: Yes (Hospitalization)
  Sender: FDA-Public Use
  Company Number: TR-B.Braun Medical Inc.-2141034

PATIENT
  Age: 4 Year

DRUGS (1)
  1. SODIUM CHLORIDE [Suspect]
     Active Substance: SODIUM CHLORIDE

REACTIONS (3)
  - Suspected transmission of an infectious agent via product [Unknown]
  - Product contamination [Unknown]
  - Haematological infection [Unknown]
